FAERS Safety Report 9189468 (Version 2)
Quarter: 2013Q2

REPORT INFORMATION
  Report Type: Spontaneous
  Country: US (occurrence: None)
  Receive Date: 20120702
  Receipt Date: 20130225
  Transmission Date: 20140414
  Serious: Yes (Other)
  Sender: FDA-Public Use
  Company Number: 2011-117

PATIENT
  Age: 47 Year
  Sex: Female

DRUGS (1)
  1. PRIALT [Suspect]
     Indication: PAIN
     Route: 037

REACTIONS (8)
  - Suicidal ideation [None]
  - Back pain [None]
  - Pelvic pain [None]
  - Delusion [None]
  - Depressed mood [None]
  - Hallucination, auditory [None]
  - Hypoaesthesia [None]
  - Pain in extremity [None]
